FAERS Safety Report 23058223 (Version 4)
Quarter: 2025Q2

REPORT INFORMATION
  Report Type: Spontaneous
  Country: CA (occurrence: CA)
  Receive Date: 20231012
  Receipt Date: 20250422
  Transmission Date: 20250717
  Serious: Yes (Other)
  Sender: MYLAN
  Company Number: CA-MYLANLABS-2023M1105077

PATIENT
  Age: 33 Year
  Sex: Male

DRUGS (112)
  1. PHENYTOIN [Suspect]
     Active Substance: PHENYTOIN
     Indication: New onset refractory status epilepticus
  2. PHENYTOIN [Suspect]
     Active Substance: PHENYTOIN
     Route: 065
  3. PHENYTOIN [Suspect]
     Active Substance: PHENYTOIN
     Route: 065
  4. PHENYTOIN [Suspect]
     Active Substance: PHENYTOIN
  5. VALPROIC ACID [Suspect]
     Active Substance: VALPROIC ACID
     Indication: New onset refractory status epilepticus
  6. VALPROIC ACID [Suspect]
     Active Substance: VALPROIC ACID
     Route: 065
  7. VALPROIC ACID [Suspect]
     Active Substance: VALPROIC ACID
     Route: 065
  8. VALPROIC ACID [Suspect]
     Active Substance: VALPROIC ACID
  9. LAMOTRIGINE [Suspect]
     Active Substance: LAMOTRIGINE
     Indication: New onset refractory status epilepticus
  10. LAMOTRIGINE [Suspect]
     Active Substance: LAMOTRIGINE
     Route: 065
  11. LAMOTRIGINE [Suspect]
     Active Substance: LAMOTRIGINE
     Route: 065
  12. LAMOTRIGINE [Suspect]
     Active Substance: LAMOTRIGINE
  13. TOPIRAMATE [Suspect]
     Active Substance: TOPIRAMATE
     Indication: New onset refractory status epilepticus
  14. TOPIRAMATE [Suspect]
     Active Substance: TOPIRAMATE
     Route: 065
  15. TOPIRAMATE [Suspect]
     Active Substance: TOPIRAMATE
     Route: 065
  16. TOPIRAMATE [Suspect]
     Active Substance: TOPIRAMATE
  17. AZATHIOPRINE [Suspect]
     Active Substance: AZATHIOPRINE
     Indication: New onset refractory status epilepticus
  18. AZATHIOPRINE [Suspect]
     Active Substance: AZATHIOPRINE
     Route: 065
  19. AZATHIOPRINE [Suspect]
     Active Substance: AZATHIOPRINE
     Route: 065
  20. AZATHIOPRINE [Suspect]
     Active Substance: AZATHIOPRINE
  21. BRIVARACETAM [Suspect]
     Active Substance: BRIVARACETAM
     Indication: New onset refractory status epilepticus
  22. BRIVARACETAM [Suspect]
     Active Substance: BRIVARACETAM
     Route: 065
  23. BRIVARACETAM [Suspect]
     Active Substance: BRIVARACETAM
     Route: 065
  24. BRIVARACETAM [Suspect]
     Active Substance: BRIVARACETAM
  25. ESLICARBAZEPINE ACETATE [Suspect]
     Active Substance: ESLICARBAZEPINE ACETATE
     Indication: New onset refractory status epilepticus
  26. ESLICARBAZEPINE ACETATE [Suspect]
     Active Substance: ESLICARBAZEPINE ACETATE
     Route: 065
  27. ESLICARBAZEPINE ACETATE [Suspect]
     Active Substance: ESLICARBAZEPINE ACETATE
     Route: 065
  28. ESLICARBAZEPINE ACETATE [Suspect]
     Active Substance: ESLICARBAZEPINE ACETATE
  29. FENTANYL [Suspect]
     Active Substance: FENTANYL
     Indication: New onset refractory status epilepticus
  30. FENTANYL [Suspect]
     Active Substance: FENTANYL
     Route: 065
  31. FENTANYL [Suspect]
     Active Substance: FENTANYL
     Route: 065
  32. FENTANYL [Suspect]
     Active Substance: FENTANYL
  33. KETAMINE [Suspect]
     Active Substance: KETAMINE
     Indication: New onset refractory status epilepticus
  34. KETAMINE [Suspect]
     Active Substance: KETAMINE
     Route: 065
  35. KETAMINE [Suspect]
     Active Substance: KETAMINE
     Route: 065
  36. KETAMINE [Suspect]
     Active Substance: KETAMINE
  37. LACOSAMIDE [Suspect]
     Active Substance: LACOSAMIDE
     Indication: New onset refractory status epilepticus
  38. LACOSAMIDE [Suspect]
     Active Substance: LACOSAMIDE
     Route: 065
  39. LACOSAMIDE [Suspect]
     Active Substance: LACOSAMIDE
     Route: 065
  40. LACOSAMIDE [Suspect]
     Active Substance: LACOSAMIDE
  41. LEVETIRACETAM [Suspect]
     Active Substance: LEVETIRACETAM
     Indication: New onset refractory status epilepticus
  42. LEVETIRACETAM [Suspect]
     Active Substance: LEVETIRACETAM
     Route: 065
  43. LEVETIRACETAM [Suspect]
     Active Substance: LEVETIRACETAM
     Route: 065
  44. LEVETIRACETAM [Suspect]
     Active Substance: LEVETIRACETAM
  45. METHYLPREDNISOLONE [Suspect]
     Active Substance: METHYLPREDNISOLONE
     Indication: New onset refractory status epilepticus
  46. METHYLPREDNISOLONE [Suspect]
     Active Substance: METHYLPREDNISOLONE
     Route: 065
  47. METHYLPREDNISOLONE [Suspect]
     Active Substance: METHYLPREDNISOLONE
     Route: 065
  48. METHYLPREDNISOLONE [Suspect]
     Active Substance: METHYLPREDNISOLONE
  49. MIDAZOLAM [Suspect]
     Active Substance: MIDAZOLAM
     Indication: New onset refractory status epilepticus
  50. MIDAZOLAM [Suspect]
     Active Substance: MIDAZOLAM
     Route: 030
  51. MIDAZOLAM [Suspect]
     Active Substance: MIDAZOLAM
     Route: 030
  52. MIDAZOLAM [Suspect]
     Active Substance: MIDAZOLAM
  53. PERAMPANEL [Suspect]
     Active Substance: PERAMPANEL
     Indication: New onset refractory status epilepticus
  54. PERAMPANEL [Suspect]
     Active Substance: PERAMPANEL
     Route: 065
  55. PERAMPANEL [Suspect]
     Active Substance: PERAMPANEL
     Route: 065
  56. PERAMPANEL [Suspect]
     Active Substance: PERAMPANEL
  57. PHENOBARBITAL [Suspect]
     Active Substance: PHENOBARBITAL
     Indication: New onset refractory status epilepticus
  58. PHENOBARBITAL [Suspect]
     Active Substance: PHENOBARBITAL
     Route: 065
  59. PHENOBARBITAL [Suspect]
     Active Substance: PHENOBARBITAL
     Route: 065
  60. PHENOBARBITAL [Suspect]
     Active Substance: PHENOBARBITAL
  61. PREDNISONE [Suspect]
     Active Substance: PREDNISONE
     Indication: New onset refractory status epilepticus
  62. PREDNISONE [Suspect]
     Active Substance: PREDNISONE
     Route: 065
  63. PREDNISONE [Suspect]
     Active Substance: PREDNISONE
     Route: 065
  64. PREDNISONE [Suspect]
     Active Substance: PREDNISONE
  65. PROPOFOL [Suspect]
     Active Substance: PROPOFOL
     Indication: New onset refractory status epilepticus
  66. PROPOFOL [Suspect]
     Active Substance: PROPOFOL
     Route: 065
  67. PROPOFOL [Suspect]
     Active Substance: PROPOFOL
     Route: 065
  68. PROPOFOL [Suspect]
     Active Substance: PROPOFOL
  69. TOPIRAMATE [Suspect]
     Active Substance: TOPIRAMATE
     Indication: New onset refractory status epilepticus
  70. TOPIRAMATE [Suspect]
     Active Substance: TOPIRAMATE
     Route: 065
  71. TOPIRAMATE [Suspect]
     Active Substance: TOPIRAMATE
     Route: 065
  72. TOPIRAMATE [Suspect]
     Active Substance: TOPIRAMATE
  73. LACOSAMIDE [Suspect]
     Active Substance: LACOSAMIDE
     Indication: New onset refractory status epilepticus
  74. LACOSAMIDE [Suspect]
     Active Substance: LACOSAMIDE
     Route: 065
  75. LACOSAMIDE [Suspect]
     Active Substance: LACOSAMIDE
     Route: 065
  76. LACOSAMIDE [Suspect]
     Active Substance: LACOSAMIDE
  77. MIDAZOLAM [Suspect]
     Active Substance: MIDAZOLAM
     Indication: New onset refractory status epilepticus
  78. MIDAZOLAM [Suspect]
     Active Substance: MIDAZOLAM
     Route: 065
  79. MIDAZOLAM [Suspect]
     Active Substance: MIDAZOLAM
     Route: 065
  80. MIDAZOLAM [Suspect]
     Active Substance: MIDAZOLAM
  81. FYCOMPA [Suspect]
     Active Substance: PERAMPANEL
     Indication: New onset refractory status epilepticus
  82. FYCOMPA [Suspect]
     Active Substance: PERAMPANEL
     Route: 065
  83. FYCOMPA [Suspect]
     Active Substance: PERAMPANEL
     Route: 065
  84. FYCOMPA [Suspect]
     Active Substance: PERAMPANEL
  85. FYCOMPA [Suspect]
     Active Substance: PERAMPANEL
     Indication: New onset refractory status epilepticus
  86. FYCOMPA [Suspect]
     Active Substance: PERAMPANEL
     Route: 065
  87. FYCOMPA [Suspect]
     Active Substance: PERAMPANEL
     Route: 065
  88. FYCOMPA [Suspect]
     Active Substance: PERAMPANEL
  89. LACOSAMIDE [Suspect]
     Active Substance: LACOSAMIDE
     Indication: New onset refractory status epilepticus
  90. LACOSAMIDE [Suspect]
     Active Substance: LACOSAMIDE
     Route: 065
  91. LACOSAMIDE [Suspect]
     Active Substance: LACOSAMIDE
     Route: 065
  92. LACOSAMIDE [Suspect]
     Active Substance: LACOSAMIDE
  93. PHENOBARBITAL SODIUM [Suspect]
     Active Substance: PHENOBARBITAL SODIUM
     Indication: New onset refractory status epilepticus
  94. PHENOBARBITAL SODIUM [Suspect]
     Active Substance: PHENOBARBITAL SODIUM
     Route: 065
  95. PHENOBARBITAL SODIUM [Suspect]
     Active Substance: PHENOBARBITAL SODIUM
     Route: 065
  96. PHENOBARBITAL SODIUM [Suspect]
     Active Substance: PHENOBARBITAL SODIUM
  97. TOPIRAMATE [Suspect]
     Active Substance: TOPIRAMATE
     Indication: New onset refractory status epilepticus
  98. TOPIRAMATE [Suspect]
     Active Substance: TOPIRAMATE
     Route: 065
  99. TOPIRAMATE [Suspect]
     Active Substance: TOPIRAMATE
     Route: 065
  100. TOPIRAMATE [Suspect]
     Active Substance: TOPIRAMATE
  101. ACYCLOVIR [Concomitant]
     Active Substance: ACYCLOVIR
     Indication: Product used for unknown indication
  102. ACYCLOVIR [Concomitant]
     Active Substance: ACYCLOVIR
     Route: 065
  103. ACYCLOVIR [Concomitant]
     Active Substance: ACYCLOVIR
     Route: 065
  104. ACYCLOVIR [Concomitant]
     Active Substance: ACYCLOVIR
  105. VANCOMYCIN [Concomitant]
     Active Substance: VANCOMYCIN
     Indication: Product used for unknown indication
  106. VANCOMYCIN [Concomitant]
     Active Substance: VANCOMYCIN
     Route: 065
  107. VANCOMYCIN [Concomitant]
     Active Substance: VANCOMYCIN
     Route: 065
  108. VANCOMYCIN [Concomitant]
     Active Substance: VANCOMYCIN
  109. PIPERACILLIN AND TAZOBACTAM [Concomitant]
     Active Substance: PIPERACILLIN SODIUM\TAZOBACTAM SODIUM
     Indication: Product used for unknown indication
  110. PIPERACILLIN AND TAZOBACTAM [Concomitant]
     Active Substance: PIPERACILLIN SODIUM\TAZOBACTAM SODIUM
     Route: 065
  111. PIPERACILLIN AND TAZOBACTAM [Concomitant]
     Active Substance: PIPERACILLIN SODIUM\TAZOBACTAM SODIUM
     Route: 065
  112. PIPERACILLIN AND TAZOBACTAM [Concomitant]
     Active Substance: PIPERACILLIN SODIUM\TAZOBACTAM SODIUM

REACTIONS (5)
  - New onset refractory status epilepticus [Unknown]
  - Condition aggravated [Unknown]
  - Off label use [Unknown]
  - Product use in unapproved indication [Unknown]
  - Drug ineffective [Unknown]
